FAERS Safety Report 4294661-8 (Version None)
Quarter: 2004Q1

REPORT INFORMATION
  Report Type: 
  Country: None (occurrence: None)
  Receive Date: 20040213
  Receipt Date: 20030616
  Transmission Date: 20041129
  Serious: Yes (Hospitalization, Disabling)
  Sender: FDA-Public Use
  Company Number: JP-GLAXOSMITHKLINE-B0302395A

PATIENT
  Age: 39 Year
  Sex: Male
  Weight: 34.4 kg

DRUGS (4)
  1. PAROXETINE [Suspect]
     Indication: PANIC DISORDER
     Dosage: 20MG PER DAY
     Route: 048
     Dates: start: 20020302, end: 20030604
  2. TICLOPIDINE HCL [Suspect]
     Indication: ATRIAL FIBRILLATION
     Dosage: 100MG PER DAY
     Route: 048
     Dates: start: 20011229, end: 20030605
  3. OMEPRAZOLE [Suspect]
     Indication: REFLUX OESOPHAGITIS
     Dosage: 20MG PER DAY
     Route: 048
     Dates: start: 20030322, end: 20030605
  4. DISOPYRAMIDE [Concomitant]
     Indication: ATRIAL FIBRILLATION
     Dosage: 300MG PER DAY
     Route: 048
     Dates: start: 20011229, end: 20030605

REACTIONS (11)
  - ANOREXIA [None]
  - CARDIAC FAILURE CONGESTIVE [None]
  - CATHETER SITE RELATED REACTION [None]
  - DISSEMINATED INTRAVASCULAR COAGULATION [None]
  - DYSPNOEA [None]
  - HEPATIC FUNCTION ABNORMAL [None]
  - MALAISE [None]
  - PALPITATIONS [None]
  - RENAL FAILURE ACUTE [None]
  - RHABDOMYOLYSIS [None]
  - URINARY BLADDER HAEMORRHAGE [None]
